FAERS Safety Report 15419505 (Version 1)
Quarter: 2018Q3

REPORT INFORMATION
  Report Type: Spontaneous
  Country: DE (occurrence: DE)
  Receive Date: 20180924
  Receipt Date: 20180924
  Transmission Date: 20181010
  Serious: Yes (Death, Other)
  Sender: FDA-Public Use
  Company Number: DE-009507513-1805DEU014429

PATIENT
  Sex: Female

DRUGS (2)
  1. PREVYMIS [Suspect]
     Active Substance: LETERMOVIR
     Indication: ANTIVIRAL PROPHYLAXIS
     Dosage: 480 MG, QD (REPORTED AS 240 MG OR 480 MG, ONCE DAILY)
     Route: 048
     Dates: start: 20180515, end: 2018
  2. PREVYMIS [Suspect]
     Active Substance: LETERMOVIR
     Dosage: 240 MG, QD (REPORTED AS 240 MG OR 480 MG, ONCE DAILY)
     Route: 048
     Dates: start: 20180515, end: 2018

REACTIONS (4)
  - Death [Fatal]
  - Off label use [Unknown]
  - Drug resistance [Unknown]
  - Treatment failure [Not Recovered/Not Resolved]

NARRATIVE: CASE EVENT DATE: 2018
